FAERS Safety Report 9855054 (Version 2)
Quarter: 2014Q2

REPORT INFORMATION
  Report Type: Spontaneous
  Country: IS (occurrence: None)
  Receive Date: 20140127
  Receipt Date: 20140415
  Transmission Date: 20141212
  Serious: Yes (Other)
  Sender: FDA-Public Use
  Company Number: 2013AP010809

PATIENT
  Age: 18 Year
  Sex: Female

DRUGS (3)
  1. FERRIPROX [Suspect]
     Indication: THALASSAEMIA SICKLE CELL
  2. EXJADE (DEFERASIROX) DISPERSIBLE TABLET [Concomitant]
  3. DESFERAL (DEFEROXAMINE MESILATE) [Concomitant]

REACTIONS (1)
  - Agranulocytosis [None]
